FAERS Safety Report 11371635 (Version 2)
Quarter: 2015Q3

REPORT INFORMATION
  Report Type: Spontaneous
  Country: JP (occurrence: JP)
  Receive Date: 20150812
  Receipt Date: 20150910
  Transmission Date: 20151125
  Serious: Yes (Death)
  Sender: FDA-Public Use
  Company Number: JP-ROCHE-1620281

PATIENT
  Age: 60 Year
  Sex: Female
  Weight: 47 kg

DRUGS (10)
  1. KADCYLA [Suspect]
     Active Substance: ADO-TRASTUZUMAB EMTANSINE
     Indication: BREAST CANCER
     Dosage: DOSAGE IS UNCERTAIN.
     Route: 041
     Dates: start: 20150727, end: 20150806
  2. RESPLEN [Concomitant]
     Active Substance: EPRAZINONE
     Route: 048
  3. FERROUS CITRATE [Concomitant]
     Active Substance: FERROUS CITRATE
     Route: 048
  4. FUROSEMIDE. [Concomitant]
     Active Substance: FUROSEMIDE
     Dosage: AMOUNT OF 1 ONCE ADMINISTRATION: 1 (UNIT UNCERTAINTY)
     Route: 048
  5. CODEINE PHOSPHATE [Concomitant]
     Active Substance: CODEINE PHOSPHATE
     Route: 048
  6. PANTETHINE [Concomitant]
     Active Substance: PANTETHINE
     Route: 048
  7. KADCYLA [Suspect]
     Active Substance: ADO-TRASTUZUMAB EMTANSINE
     Indication: BREAST CANCER
     Dosage: DOSAGE IS UNCERTAIN.
     Route: 041
     Dates: start: 20150608, end: 20150719
  8. OXYCONTIN [Concomitant]
     Active Substance: OXYCODONE HYDROCHLORIDE
     Route: 048
  9. CALONAL [Concomitant]
     Active Substance: ACETAMINOPHEN
     Route: 048
  10. NEXIUM [Concomitant]
     Active Substance: ESOMEPRAZOLE MAGNESIUM
     Dosage: AMOUNT OF 1 ONCE ADMINISTRATION: 1 (UNIT UNCERTAINTY)
     Route: 048

REACTIONS (2)
  - Interstitial lung disease [Fatal]
  - Pharyngitis [Unknown]

NARRATIVE: CASE EVENT DATE: 20150615
